FAERS Safety Report 14388449 (Version 3)
Quarter: 2018Q1

REPORT INFORMATION
  Report Type: Report from Study
  Country: CA (occurrence: CA)
  Receive Date: 20180115
  Receipt Date: 20180302
  Transmission Date: 20180509
  Serious: Yes (Other)
  Sender: FDA-Public Use
  Company Number: CA-JNJFOC-20180114721

PATIENT
  Age: 34 Year
  Sex: Female
  Weight: 95.25 kg

DRUGS (5)
  1. REMICADE [Suspect]
     Active Substance: INFLIXIMAB
     Indication: CROHN^S DISEASE
     Dosage: STRENGTH = 100 MG
     Route: 042
     Dates: start: 2013
  2. REMICADE [Suspect]
     Active Substance: INFLIXIMAB
     Indication: CROHN^S DISEASE
     Route: 042
  3. REMICADE [Suspect]
     Active Substance: INFLIXIMAB
     Indication: CROHN^S DISEASE
     Route: 042
     Dates: start: 20131029
  4. REMICADE [Suspect]
     Active Substance: INFLIXIMAB
     Indication: CROHN^S DISEASE
     Route: 042
     Dates: start: 20171219
  5. REMICADE [Suspect]
     Active Substance: INFLIXIMAB
     Indication: CROHN^S DISEASE
     Route: 042
     Dates: start: 20180125

REACTIONS (9)
  - Peripheral swelling [Not Recovered/Not Resolved]
  - Post procedural haemorrhage [Unknown]
  - Pain in extremity [Unknown]
  - General physical health deterioration [Unknown]
  - Abdominal pain [Unknown]
  - Off label use [Unknown]
  - Frequent bowel movements [Recovering/Resolving]
  - Mastectomy [Unknown]
  - Product use issue [Unknown]

NARRATIVE: CASE EVENT DATE: 2013
